FAERS Safety Report 15433548 (Version 1)
Quarter: 2018Q3

REPORT INFORMATION
  Report Type: Spontaneous
  Country: US (occurrence: US)
  Receive Date: 20180922
  Receipt Date: 20180922
  Transmission Date: 20181010
  Serious: No
  Sender: FDA-Public Use
  Company Number: None

PATIENT
  Age: 42 Year
  Sex: Female
  Weight: 112.5 kg

DRUGS (3)
  1. LEVOTHYROXINE. [Suspect]
     Active Substance: LEVOTHYROXINE
     Indication: AUTOIMMUNE THYROIDITIS
     Dosage: ?          QUANTITY:1 TABLET(S);?
     Route: 048
     Dates: start: 20180806
  2. FAMOTIDINE. [Concomitant]
     Active Substance: FAMOTIDINE
  3. FEXAFENADINE/ALLEGRA [Concomitant]

REACTIONS (2)
  - Headache [None]
  - Migraine with aura [None]

NARRATIVE: CASE EVENT DATE: 20180921
